FAERS Safety Report 22388163 (Version 3)
Quarter: 2024Q3

REPORT INFORMATION
  Report Type: Spontaneous
  Country: US (occurrence: US)
  Receive Date: 20230531
  Receipt Date: 20240718
  Transmission Date: 20241017
  Serious: No
  Sender: SANOFI AVENTIS
  Company Number: US-SA-SAC20230530000874

PATIENT
  Age: 8 Year
  Sex: Male

DRUGS (2)
  1. DUPIXENT [Suspect]
     Active Substance: DUPILUMAB
     Indication: Eosinophilic oesophagitis
     Dosage: 300 MG, QW
     Route: 058
  2. DUPIXENT [Suspect]
     Active Substance: DUPILUMAB
     Dosage: 1 DF, QW
     Route: 058
     Dates: start: 20240320

REACTIONS (5)
  - Impaired quality of life [Not Recovered/Not Resolved]
  - Fear of injection [Unknown]
  - Eosinophilic oesophagitis [Not Recovered/Not Resolved]
  - Rebound effect [Not Recovered/Not Resolved]
  - Off label use [Unknown]
